FAERS Safety Report 11279650 (Version 1)
Quarter: 2015Q3

REPORT INFORMATION
  Report Type: Spontaneous
  Country: US (occurrence: US)
  Receive Date: 20150717
  Receipt Date: 20150717
  Transmission Date: 20151125
  Serious: No
  Sender: FDA-Public Use
  Company Number: US-HORIZON-PEN-0117-2015

PATIENT
  Age: 35 Year
  Sex: Male

DRUGS (1)
  1. PENNSAID [Suspect]
     Active Substance: DICLOFENAC SODIUM
     Indication: ARTHRITIS
     Dosage: 2 PUMPS TO AFFECTED JOINTS 2 TIMES A DAY
     Route: 061

REACTIONS (2)
  - Off label use [Not Recovered/Not Resolved]
  - Product quality issue [Unknown]

NARRATIVE: CASE EVENT DATE: 20150711
